FAERS Safety Report 19007619 (Version 2)
Quarter: 2022Q1

REPORT INFORMATION
  Report Type: Other
  Country: US (occurrence: None)
  Receive Date: 20210315
  Receipt Date: 20220203
  Transmission Date: 20220423
  Serious: Yes (Hospitalization, Other)
  Sender: FDA-Public Use
  Company Number: US-ROCHE-2059174

PATIENT
  Age: 41 Year
  Sex: Female
  Weight: 56.750 kg

DRUGS (14)
  1. OCREVUS [Suspect]
     Active Substance: OCRELIZUMAB
     Indication: Secondary progressive multiple sclerosis
     Dosage: ONGOING: YES
     Route: 042
     Dates: start: 20170829
  2. OCREVUS [Suspect]
     Active Substance: OCRELIZUMAB
     Dosage: 07/AUG/2017, 28/AUG/2017, 05/FEB/2018, 06/AUG/2018, 11/FEB/2019, 26/AUG/2019
     Route: 042
  3. OCREVUS [Suspect]
     Active Substance: OCRELIZUMAB
     Route: 042
     Dates: start: 201708
  4. OCREVUS [Suspect]
     Active Substance: OCRELIZUMAB
     Route: 042
     Dates: start: 20170807
  5. OCREVUS [Suspect]
     Active Substance: OCRELIZUMAB
     Dosage: 06/AUG/2018, AUG/2018, 11/FEB/2019, 26/AUG/2019, 24/FEB/2020, AUG/2021
     Route: 042
     Dates: start: 20180205
  6. AMPYRA [Concomitant]
     Active Substance: DALFAMPRIDINE
     Route: 048
  7. AMPYRA [Concomitant]
     Active Substance: DALFAMPRIDINE
     Route: 048
     Dates: start: 2014
  8. LISINOPRIL [Concomitant]
     Active Substance: LISINOPRIL
     Indication: Hypertension
     Route: 048
  9. MEMANTINE [Concomitant]
     Active Substance: MEMANTINE
     Indication: Nystagmus
     Dosage: TAKES 2 DAILY
     Route: 048
  10. TIZANIDINE [Concomitant]
     Active Substance: TIZANIDINE
     Indication: Muscle spasms
     Route: 048
  11. MOTRIN [Concomitant]
     Active Substance: IBUPROFEN
  12. TYLENOL [Concomitant]
     Active Substance: ACETAMINOPHEN
  13. ADVIL [Concomitant]
     Active Substance: IBUPROFEN
  14. CANNABIDIOL [Concomitant]
     Active Substance: CANNABIDIOL

REACTIONS (21)
  - Multiple sclerosis relapse [Recovered/Resolved]
  - Uterine leiomyoma [Recovered/Resolved]
  - Gait disturbance [Not Recovered/Not Resolved]
  - Fall [Unknown]
  - Memory impairment [Unknown]
  - Taste disorder [Recovering/Resolving]
  - Cervical vertebral fracture [Not Recovered/Not Resolved]
  - Muscle spasms [Recovered/Resolved]
  - Pollakiuria [Recovering/Resolving]
  - Gait inability [Unknown]
  - Urinary tract infection [Recovering/Resolving]
  - Heavy menstrual bleeding [Recovered/Resolved]
  - Pain [Recovered/Resolved]
  - Micturition urgency [Not Recovered/Not Resolved]
  - Anxiety [Recovering/Resolving]
  - Bipolar I disorder [Recovering/Resolving]
  - Weight increased [Not Recovered/Not Resolved]
  - Skin laceration [Recovered/Resolved]
  - Spinal fracture [Recovered/Resolved]
  - Osteoporosis [Not Recovered/Not Resolved]
  - Weight decreased [Unknown]

NARRATIVE: CASE EVENT DATE: 20170901
